FAERS Safety Report 19191012 (Version 1)
Quarter: 2021Q2

REPORT INFORMATION
  Report Type: Spontaneous
  Country: HU (occurrence: HU)
  Receive Date: 20210428
  Receipt Date: 20210428
  Transmission Date: 20210717
  Serious: Yes (Other)
  Sender: FDA-Public Use
  Company Number: HU-INCYTE CORPORATION-2021IN003792

PATIENT

DRUGS (2)
  1. JAKAVI [Suspect]
     Active Substance: RUXOLITINIB
     Indication: GRAFT VERSUS HOST DISEASE
     Dosage: UNK
     Route: 065
  2. ELTROMBOPAG [Suspect]
     Active Substance: ELTROMBOPAG
     Indication: THROMBOCYTOPENIA
     Dosage: 150 MG, QD
     Route: 065
     Dates: start: 20201105

REACTIONS (8)
  - Megakaryocytes decreased [Unknown]
  - Thrombocytopenia [Recovering/Resolving]
  - Cytopenia [Recovering/Resolving]
  - Systemic mycosis [Recovering/Resolving]
  - Pneumonia fungal [Unknown]
  - Bone marrow failure [Unknown]
  - Haemophagocytic lymphohistiocytosis [Unknown]
  - Off label use [Unknown]

NARRATIVE: CASE EVENT DATE: 2020
